FAERS Safety Report 5788663-X (Version None)
Quarter: 2008Q2

REPORT INFORMATION
  Report Type: 
  Country: None (occurrence: None)
  Receive Date: 20080626
  Receipt Date: 20080616
  Transmission Date: 20081010
  Serious: Yes (Other)
  Sender: FDA-Public Use
  Company Number: PHEH2008US05426

PATIENT
  Sex: Male
  Weight: 74.376 kg

DRUGS (9)
  1. DIOVAN [Suspect]
     Indication: HYPERTENSION
     Dosage: 80 MG, 1/2 TAB BID
     Route: 048
     Dates: end: 20080616
  2. DIOVAN [Suspect]
     Dosage: 40 MG, QD
     Route: 048
     Dates: start: 20080617
  3. HYDROCHLOROTHIAZIDE [Suspect]
     Indication: HYPERTENSION
     Dosage: UNK, QOD
     Route: 048
     Dates: end: 20080601
  4. HYDROCHLOROTHIAZIDE [Suspect]
     Dosage: UNK, QD
     Route: 048
     Dates: start: 20080601
  5. NORVASC [Concomitant]
     Indication: HYPERTENSION
     Dosage: UNK, UNK
     Dates: end: 20080601
  6. ATENOLOL [Concomitant]
     Indication: HYPERTENSION
     Dosage: 25 MG, BID
     Route: 048
  7. TEGRETOL [Concomitant]
     Indication: PROPHYLAXIS
     Dosage: 200 MG, BID
     Route: 048
  8. LIPITOR [Concomitant]
     Indication: BLOOD CHOLESTEROL INCREASED
     Dosage: 40 MG, QD
     Route: 048
  9. COUMADIN [Concomitant]
     Indication: ANEURYSM
     Dosage: UNK, UNK
     Route: 048

REACTIONS (8)
  - ANEURYSM [None]
  - ANEURYSM REPAIR [None]
  - BLOOD CREATININE INCREASED [None]
  - BLOOD UREA INCREASED [None]
  - CONDITION AGGRAVATED [None]
  - DIZZINESS [None]
  - HYPOTENSION [None]
  - RENAL IMPAIRMENT [None]
